FAERS Safety Report 22021302 (Version 2)
Quarter: 2023Q1

REPORT INFORMATION
  Report Type: Spontaneous
  Country: US (occurrence: US)
  Receive Date: 20230222
  Receipt Date: 20230314
  Transmission Date: 20230417
  Serious: No
  Sender: FDA-Public Use
  Company Number: US-AMGEN-USASP2023029261

PATIENT
  Age: 62 Year
  Sex: Male

DRUGS (1)
  1. REPATHA [Suspect]
     Active Substance: EVOLOCUMAB
     Indication: Calcinosis
     Dosage: 140 MILLIGRAM, Q2WK
     Route: 065
     Dates: start: 20230211

REACTIONS (2)
  - Circumstance or information capable of leading to device use error [Unknown]
  - Product storage error [Unknown]

NARRATIVE: CASE EVENT DATE: 20230210
